FAERS Safety Report 13978470 (Version 2)
Quarter: 2017Q3

REPORT INFORMATION
  Report Type: Spontaneous
  Country: JP (occurrence: JP)
  Receive Date: 20170915
  Receipt Date: 20170925
  Transmission Date: 20171128
  Serious: Yes (Life-Threatening, Hospitalization)
  Sender: FDA-Public Use
  Company Number: JP-JNJFOC-20170913571

PATIENT
  Age: 69 Year
  Sex: Male

DRUGS (3)
  1. OPALMON [Concomitant]
     Active Substance: LIMAPROST
     Route: 048
  2. TRAMCET [Suspect]
     Active Substance: ACETAMINOPHEN\TRAMADOL
     Indication: PAIN
     Route: 048
     Dates: start: 20170609
  3. NAUZELIN [Concomitant]
     Active Substance: DOMPERIDONE
     Route: 048
     Dates: start: 20170609

REACTIONS (5)
  - Alcohol interaction [Recovered/Resolved]
  - Cardio-respiratory arrest [Recovered/Resolved]
  - Respiratory depression [Unknown]
  - Contraindication to medical treatment [Unknown]
  - Off label use [Unknown]

NARRATIVE: CASE EVENT DATE: 20170609
